FAERS Safety Report 15810274 (Version 1)
Quarter: 2019Q1

REPORT INFORMATION
  Report Type: Spontaneous
  Country: US (occurrence: US)
  Receive Date: 20190111
  Receipt Date: 20190111
  Transmission Date: 20190417
  Serious: No
  Sender: FDA-Public Use
  Company Number: US-ROCHE-2183606

PATIENT
  Sex: Female
  Weight: 51.4 kg

DRUGS (8)
  1. PREDNISONE. [Concomitant]
     Active Substance: PREDNISONE
     Route: 048
  2. LEFLUNOMIDE. [Concomitant]
     Active Substance: LEFLUNOMIDE
  3. METHOTREXATE. [Concomitant]
     Active Substance: METHOTREXATE
  4. REMICADE [Concomitant]
     Active Substance: INFLIXIMAB
  5. NAPROXEN. [Concomitant]
     Active Substance: NAPROXEN
     Dosage: TAKE 1 TABLET BY MOUTH TWICE DAILY WITH MEALS, AS NEEDED
     Route: 048
  6. RITUXAN [Suspect]
     Active Substance: RITUXIMAB
     Indication: RHEUMATOID ARTHRITIS
     Route: 042
     Dates: start: 201411
  7. XELJANZ [Concomitant]
     Active Substance: TOFACITINIB CITRATE
     Route: 065
     Dates: start: 20170206
  8. XELJANZ [Concomitant]
     Active Substance: TOFACITINIB CITRATE
     Route: 065
     Dates: start: 20180511

REACTIONS (1)
  - Drug hypersensitivity [Unknown]
